FAERS Safety Report 21024287 (Version 1)
Quarter: 2022Q2

REPORT INFORMATION
  Report Type: Spontaneous
  Country: US (occurrence: None)
  Receive Date: 20220629
  Receipt Date: 20220629
  Transmission Date: 20220721
  Serious: Yes (Other)
  Sender: FDA-Public Use
  Company Number: None

PATIENT
  Age: 8 Year
  Sex: Female
  Weight: 22.4 kg

DRUGS (1)
  1. METHYLPHENIDATE [Suspect]
     Active Substance: METHYLPHENIDATE
     Indication: Attention deficit hyperactivity disorder
     Dosage: FREQUENCY : DAILY;?
     Route: 048
     Dates: start: 20220520, end: 20220530

REACTIONS (4)
  - Drug ineffective [None]
  - Therapeutic product effect incomplete [None]
  - Product dispensing error [None]
  - Incorrect product formulation administered [None]

NARRATIVE: CASE EVENT DATE: 20220520
